FAERS Safety Report 5436722-3 (Version None)
Quarter: 2007Q3

REPORT INFORMATION
  Report Type: 
  Country: None (occurrence: None)
  Receive Date: 20070831
  Receipt Date: 20070822
  Transmission Date: 20080115
  Serious: Yes (Hospitalization)
  Sender: FDA-Public Use
  Company Number: GB-JNJFOC-20070805470

PATIENT
  Age: 73 Year
  Sex: Female

DRUGS (2)
  1. ITRACONAZOLE [Suspect]
     Indication: CHEMOTHERAPY
     Route: 065
  2. SIMVASTATIN [Suspect]
     Indication: CHEMOTHERAPY
     Route: 065

REACTIONS (1)
  - RHABDOMYOLYSIS [None]
